FAERS Safety Report 14148500 (Version 2)
Quarter: 2017Q4

REPORT INFORMATION
  Report Type: Spontaneous
  Country: CH (occurrence: CH)
  Receive Date: 20171101
  Receipt Date: 20171109
  Transmission Date: 20180321
  Serious: Yes (Other)
  Sender: FDA-Public Use
  Company Number: CH-009507513-1710CHE012480

PATIENT
  Age: 73 Year
  Sex: Male

DRUGS (7)
  1. PANTOPRAZOLE [Concomitant]
     Active Substance: PANTOPRAZOLE
  2. PROSTA URGENIN [Concomitant]
  3. FRAXIPARIN [Concomitant]
     Active Substance: NADROPARIN CALCIUM
  4. CHOLECALCIFEROL [Concomitant]
     Active Substance: CHOLECALCIFEROL
  5. ZEPATIER [Suspect]
     Active Substance: ELBASVIR\GRAZOPREVIR
     Dosage: 1 DF, QD
     Route: 048
     Dates: start: 20160916, end: 20161209
  6. FOLIC ACID. [Concomitant]
     Active Substance: FOLIC ACID
  7. TEMESTA (LORAZEPAM) [Concomitant]
     Active Substance: LORAZEPAM

REACTIONS (1)
  - Hepatocellular carcinoma [Not Recovered/Not Resolved]

NARRATIVE: CASE EVENT DATE: 20171002
